FAERS Safety Report 25905130 (Version 1)
Quarter: 2025Q4

REPORT INFORMATION
  Report Type: Spontaneous
  Country: EU (occurrence: EU)
  Receive Date: 20251010
  Receipt Date: 20251010
  Transmission Date: 20260118
  Serious: Yes (Other)
  Sender: GLAXOSMITHKLINE
  Company Number: None

PATIENT
  Age: 96 Year
  Sex: Female
  Weight: 59 kg

DRUGS (6)
  1. LAMOTRIGINE [Suspect]
     Active Substance: LAMOTRIGINE
     Indication: Medication error
     Dosage: 25 MG (1 TOTAL)
  2. RAMIPRIL [Suspect]
     Active Substance: RAMIPRIL
     Indication: Medication error
     Dosage: 2.5 MG (1 TOTAL)
  3. CYAMEMAZINE [Suspect]
     Active Substance: CYAMEMAZINE
     Indication: Medication error
     Dosage: 12.5 MG (1 TOTAL)
  4. PREGABALIN [Suspect]
     Active Substance: PREGABALIN
     Indication: Medication error
     Dosage: 25 MG (1 TOTAL)
  5. OXAZEPAM [Suspect]
     Active Substance: OXAZEPAM
     Indication: Medication error
     Dosage: 10 MG (1 TOTAL)
  6. METFORMIN [Suspect]
     Active Substance: METFORMIN HYDROCHLORIDE
     Indication: Medication error
     Dosage: 500 MG (1 TOTAL)

REACTIONS (3)
  - Somnolence [Recovered/Resolved]
  - Hypotension [Recovered/Resolved]
  - Tremor [Recovered/Resolved]

NARRATIVE: CASE EVENT DATE: 20250825
